FAERS Safety Report 6329416-3 (Version None)
Quarter: 2009Q3

REPORT INFORMATION
  Report Type: 
  Country: None (occurrence: None)
  Receive Date: 20090826
  Receipt Date: 20090819
  Transmission Date: 20100115
  Serious: Yes (Other)
  Sender: FDA-Public Use
  Company Number: A0803880A

PATIENT
  Age: 45 Year
  Sex: Female

DRUGS (4)
  1. TYKERB [Suspect]
     Dosage: 1250MG PER DAY
     Route: 048
     Dates: start: 20090715, end: 20090810
  2. TAXOTERE [Concomitant]
     Indication: CHEMOTHERAPY
     Dates: start: 20090728
  3. CARBOPLATIN [Concomitant]
     Indication: CHEMOTHERAPY
     Dates: start: 20090728
  4. HERCEPTIN [Concomitant]
     Indication: CHEMOTHERAPY
     Dates: start: 20090728

REACTIONS (2)
  - NEUTROPENIA [None]
  - WHITE BLOOD CELL COUNT DECREASED [None]
